FAERS Safety Report 7281677-2 (Version None)
Quarter: 2011Q1

REPORT INFORMATION
  Report Type: 
  Country: None (occurrence: None)
  Receive Date: 20110208
  Receipt Date: 20110131
  Transmission Date: 20110831
  Serious: Yes (Other)
  Sender: FDA-Public Use
  Company Number: US-US-EMD SERONO, INC.-7003290

PATIENT
  Sex: Female

DRUGS (1)
  1. REBIF [Suspect]
     Indication: MULTIPLE SCLEROSIS
     Route: 058
     Dates: start: 20020705

REACTIONS (6)
  - PEPTIC ULCER [None]
  - HIATUS HERNIA [None]
  - OESOPHAGEAL STENOSIS [None]
  - CARPAL TUNNEL SYNDROME [None]
  - VASODILATATION [None]
  - MUSCLE STRAIN [None]
